FAERS Safety Report 4872783-8 (Version None)
Quarter: 2006Q1

REPORT INFORMATION
  Report Type: 
  Country: None (occurrence: None)
  Receive Date: 20060103
  Receipt Date: 20051222
  Transmission Date: 20060701
  Serious: Yes (Life-Threatening, Hospitalization)
  Sender: FDA-Public Use
  Company Number: 200512215GDS

PATIENT
  Age: 84 Year
  Sex: Male
  Weight: 64 kg

DRUGS (4)
  1. ASPIRIN [Suspect]
     Indication: ATRIAL FIBRILLATION
     Dosage: 100 MG, QD, ORAL
     Route: 048
  2. ASPIRIN [Suspect]
     Indication: CEREBRAL INFARCTION
     Dosage: 100 MG, QD, ORAL
     Route: 048
  3. AMLODIPINE BESYLATE [Concomitant]
  4. VERAPAMIL [Concomitant]

REACTIONS (11)
  - ABDOMINAL PAIN UPPER [None]
  - ATRIAL FIBRILLATION [None]
  - BLOOD CREATINE PHOSPHOKINASE INCREASED [None]
  - BODY TEMPERATURE DECREASED [None]
  - DYSPHAGIA [None]
  - HAEMATOMA [None]
  - OESOPHAGEAL DISORDER [None]
  - PEPTIC ULCER [None]
  - PLEURAL EFFUSION [None]
  - VOMITING [None]
  - WHITE BLOOD CELL COUNT INCREASED [None]
